FAERS Safety Report 10189607 (Version 3)
Quarter: 2014Q3

REPORT INFORMATION
  Report Type: Spontaneous
  Country: IT (occurrence: IT)
  Receive Date: 20140522
  Receipt Date: 20140805
  Transmission Date: 20150326
  Serious: Yes (Hospitalization)
  Sender: FDA-Public Use
  Company Number: IT-B.I. PHARMACEUTICALS,INC./RIDGEFIELD-2014-BI-22083IT

PATIENT
  Age: 77 Year
  Sex: Male

DRUGS (8)
  1. PRADAXA [Suspect]
     Active Substance: DABIGATRAN ETEXILATE MESYLATE
     Indication: ATRIAL FIBRILLATION
     Route: 048
     Dates: start: 20130601, end: 20140426
  2. OMEPRAZOLE. [Concomitant]
     Active Substance: OMEPRAZOLE
     Route: 048
  3. ZYLORIC [Concomitant]
     Active Substance: ALLOPURINOL
     Dosage: FORMULATION: DIVISIBLE TABLETS
     Route: 048
  4. MINIAS [Concomitant]
     Active Substance: LORMETAZEPAM
     Dosage: FORMULATION: ORAL DROPS
     Route: 048
  5. KLACID [Suspect]
     Active Substance: CLARITHROMYCIN
     Indication: HELICOBACTER INFECTION
     Dosage: 1000 MG
     Route: 048
     Dates: start: 20140416, end: 20140426
  6. LASIX [Concomitant]
     Active Substance: FUROSEMIDE
     Route: 048
  7. LANOXIN [Concomitant]
     Active Substance: DIGOXIN
     Indication: ATRIAL FIBRILLATION
     Route: 048
     Dates: start: 20110725, end: 20140426
  8. TRIATEC [Concomitant]
     Active Substance: RAMIPRIL
     Dosage: FORMULATION: DIVISIBLE TABLETS
     Route: 048

REACTIONS (2)
  - Hypocoagulable state [Recovered/Resolved]
  - Drug interaction [Recovered/Resolved]

NARRATIVE: CASE EVENT DATE: 20140426
